FAERS Safety Report 7488563-3 (Version None)
Quarter: 2011Q2

REPORT INFORMATION
  Report Type: 
  Country: None (occurrence: None)
  Receive Date: 20110518
  Receipt Date: 20091120
  Transmission Date: 20111010
  Serious: Yes (Other)
  Sender: FDA-Public Use
  Company Number: US-BAYER-200940881NA

PATIENT
  Age: 69 Year
  Sex: Male
  Weight: 68 kg

DRUGS (14)
  1. ZOCOR [Concomitant]
     Dosage: 40 MG DAILY
  2. LISINOPRIL [Concomitant]
     Dosage: 40 MG DAILY
     Route: 048
  3. LASIX [Concomitant]
     Dosage: 40 MG TWICE DAILY
     Route: 048
  4. INSULIN [Concomitant]
     Dosage: 35 UNITS AM, 15 UNITS PM
     Route: 048
  5. NITROGLYCERIN [Concomitant]
     Dosage: UNK
     Route: 042
     Dates: start: 20041203
  6. ZETIA [Concomitant]
     Dosage: 10 MG DAILY
     Route: 048
  7. DIOVAN [Concomitant]
     Dosage: 160/12.5
     Route: 048
  8. TRASYLOL [Suspect]
     Indication: CORONARY ARTERY BYPASS
     Dosage: 600ML
     Route: 042
     Dates: start: 20041203
  9. PLAVIX [Concomitant]
     Dosage: 75 MG DAILY
     Route: 048
  10. ACTOS [Concomitant]
     Dosage: 30 MG DAILY
     Route: 048
  11. PROTAMINE SULFATE [Concomitant]
     Dosage: UNK
     Route: 042
     Dates: start: 20041203
  12. HEPARIN [Concomitant]
     Route: 042
  13. ACETYLSALICYLIC ACID SRT [Concomitant]
     Dosage: 325 MG, QD
     Route: 048
  14. METOPROLOL TARTRATE [Concomitant]
     Dosage: 50 MG TWICE DAILY
     Route: 048

REACTIONS (12)
  - MULTI-ORGAN FAILURE [None]
  - ANHEDONIA [None]
  - FEAR [None]
  - RENAL INJURY [None]
  - ANXIETY [None]
  - PAIN [None]
  - DEPRESSION [None]
  - INJURY [None]
  - EMOTIONAL DISORDER [None]
  - RENAL FAILURE [None]
  - UNEVALUABLE EVENT [None]
  - DISABILITY [None]
